FAERS Safety Report 18410926 (Version 1)
Quarter: 2020Q4

REPORT INFORMATION
  Report Type: Spontaneous
  Country: US (occurrence: US)
  Receive Date: 20201021
  Receipt Date: 20201021
  Transmission Date: 20210114
  Serious: Yes (Hospitalization, Other)
  Sender: FDA-Public Use
  Company Number: US-HARMONY BIOSCIENCES-2020HMY01517

PATIENT
  Sex: Female

DRUGS (2)
  1. WAKIX [Suspect]
     Active Substance: PITOLISANT HYDROCHLORIDE
     Indication: SOMNOLENCE
     Dosage: UNK
  2. WAKIX [Suspect]
     Active Substance: PITOLISANT HYDROCHLORIDE
     Indication: NARCOLEPSY

REACTIONS (4)
  - Mental disorder [Recovered/Resolved]
  - Aggression [Recovered/Resolved]
  - COVID-19 [Unknown]
  - Hallucination [Recovered/Resolved]
